FAERS Safety Report 4477833-9 (Version None)
Quarter: 2004Q4

REPORT INFORMATION
  Report Type: 
  Country: None (occurrence: None)
  Receive Date: 20041018
  Receipt Date: 20041008
  Transmission Date: 20050328
  Serious: Yes (Hospitalization, Disabling, Other)
  Sender: FDA-Public Use
  Company Number: US-MERCK-0410USA01077

PATIENT
  Age: 3 Year
  Sex: Male
  Weight: 21 kg

DRUGS (6)
  1. PULMICORT [Concomitant]
     Indication: ASTHMA
     Route: 055
     Dates: start: 20020401
  2. ZYRTEC [Concomitant]
     Indication: HYPERSENSITIVITY
     Route: 048
     Dates: start: 20020401
  3. FLONASE [Concomitant]
     Indication: HYPERSENSITIVITY
     Route: 055
  4. XOPENEX [Concomitant]
     Route: 048
     Dates: start: 20020401
  5. SINGULAIR [Suspect]
     Indication: ASTHMA
     Route: 048
     Dates: start: 20020401, end: 20040801
  6. ZANTAC [Concomitant]
     Indication: GASTROOESOPHAGEAL REFLUX DISEASE
     Route: 048
     Dates: start: 19991101

REACTIONS (3)
  - DENTAL CARIES [None]
  - MUSCLE CRAMP [None]
  - SLEEP DISORDER DUE TO GENERAL MEDICAL CONDITION, INSOMNIA TYPE [None]
